FAERS Safety Report 5062981-5 (Version None)
Quarter: 2006Q3

REPORT INFORMATION
  Report Type: 
  Country: None (occurrence: None)
  Receive Date: 20060724
  Receipt Date: 20060720
  Transmission Date: 20061208
  Serious: Yes (Death)
  Sender: FDA-Public Use
  Company Number: 223856

PATIENT
  Age: 59 Year
  Sex: Male

DRUGS (3)
  1. AVASTIN [Suspect]
     Indication: NEOPLASM MALIGNANT
     Dosage: 15 MG/KG, Q3W, INTRAVENOUS
     Route: 042
     Dates: start: 20060103
  2. AMG 386               (INVESTIGATIONAL ANTINEOPLASTIC AGENT) [Suspect]
     Indication: NEOPLASM MALIGNANT
     Dosage: 3 MG/KG, 1/WEEK, INTRAVENOUS
     Route: 042
     Dates: start: 20060110
  3. LEVOFLOXACIN [Concomitant]

REACTIONS (6)
  - EPISTAXIS [None]
  - HAEMOPTYSIS [None]
  - HAEMORRHAGE [None]
  - HEART RATE INCREASED [None]
  - MOUTH HAEMORRHAGE [None]
  - PYREXIA [None]
